FAERS Safety Report 9090314 (Version 1)
Quarter: 2013Q1

REPORT INFORMATION
  Report Type: Spontaneous
  Country: US (occurrence: US)
  Receive Date: 20130131
  Receipt Date: 20130131
  Transmission Date: 20140127
  Serious: Yes (Other)
  Sender: FDA-Public Use
  Company Number: US-BAXTER-2013BAX003322

PATIENT
  Age: 35 Year
  Sex: Male

DRUGS (3)
  1. GAMMAGARD LIQUID [Suspect]
     Indication: AUTOIMMUNE THROMBOCYTOPENIA
     Route: 042
  2. DEXAMETHASONE [Suspect]
     Indication: AUTOIMMUNE HAEMOLYTIC ANAEMIA
     Route: 065
  3. DEXAMETHASONE [Suspect]
     Indication: AUTOIMMUNE THROMBOCYTOPENIA

REACTIONS (1)
  - Drug ineffective [Recovered/Resolved]
